FAERS Safety Report 4304378-9 (Version None)
Quarter: 2004Q1

REPORT INFORMATION
  Report Type: 
  Country: None (occurrence: None)
  Receive Date: 20040224
  Receipt Date: 20040210
  Transmission Date: 20041129
  Serious: Yes (Other)
  Sender: FDA-Public Use
  Company Number: US-SHR-04-021086

PATIENT
  Age: 40 Year
  Sex: Female

DRUGS (4)
  1. FLUDARA FOR INJECTION(FLUDARABINE PHOSPHATE, FLUDARABINE PHOSPHATE) AM [Suspect]
     Indication: CHRONIC LYMPHOCYTIC LEUKAEMIA
     Dosage: MODERATE DOSE (NOT SPECIFIED), INTRAVENOUS
     Route: 042
     Dates: start: 20040210
  2. CAMPATH [Suspect]
     Indication: CHRONIC LYMPHOCYTIC LEUKAEMIA
     Dosage: 3 MG, 1 DOSE, SUBCUTANEOUS; SEE IMAGE
     Route: 058
     Dates: start: 20040209, end: 20040209
  3. CAMPATH [Suspect]
     Indication: CHRONIC LYMPHOCYTIC LEUKAEMIA
     Dosage: 3 MG, 1 DOSE, SUBCUTANEOUS; SEE IMAGE
     Route: 058
     Dates: start: 20040210, end: 20040210
  4. ZOFRAN [Concomitant]

REACTIONS (2)
  - INJECTION SITE URTICARIA [None]
  - TONIC CONVULSION [None]
